FAERS Safety Report 6263037-6 (Version None)
Quarter: 2009Q3

REPORT INFORMATION
  Report Type: 
  Country: None (occurrence: None)
  Receive Date: 20090708
  Receipt Date: 20090708
  Transmission Date: 20100115
  Serious: Yes (Life-Threatening, Hospitalization)
  Sender: FDA-Public Use
  Company Number: None

PATIENT
  Age: 59 Year
  Sex: Male

DRUGS (1)
  1. LEXISCAN [Suspect]
     Indication: CARDIAC STRESS TEST
     Dosage: 0.4 MG IV
     Route: 042
     Dates: start: 20090507

REACTIONS (4)
  - CONVULSION [None]
  - EPIGASTRIC DISCOMFORT [None]
  - HYPOTENSION [None]
  - UNRESPONSIVE TO STIMULI [None]
